FAERS Safety Report 26169647 (Version 1)
Quarter: 2025Q4

REPORT INFORMATION
  Report Type: Spontaneous
  Country: US (occurrence: US)
  Receive Date: 20251217
  Receipt Date: 20251217
  Transmission Date: 20260119
  Serious: Yes (Hospitalization)
  Sender: MYLAN
  Company Number: US-MYLANLABS-2025M1107605

PATIENT
  Age: 52 Year
  Sex: Female

DRUGS (24)
  1. SPIRONOLACTONE [Suspect]
     Active Substance: SPIRONOLACTONE
     Indication: Hyperaldosteronism
     Dosage: 25 MILLIGRAM
     Route: 065
  2. SPIRONOLACTONE [Suspect]
     Active Substance: SPIRONOLACTONE
     Dosage: 25 MILLIGRAM
  3. SPIRONOLACTONE [Suspect]
     Active Substance: SPIRONOLACTONE
     Dosage: 25 MILLIGRAM
  4. SPIRONOLACTONE [Suspect]
     Active Substance: SPIRONOLACTONE
     Dosage: 25 MILLIGRAM
     Route: 065
  5. SPIRONOLACTONE [Suspect]
     Active Substance: SPIRONOLACTONE
     Dosage: UNK; SHE TRIPLED HER DOSES OF LISINOPRIL 25MG
     Route: 065
  6. SPIRONOLACTONE [Suspect]
     Active Substance: SPIRONOLACTONE
     Dosage: UNK; SHE TRIPLED HER DOSES OF LISINOPRIL 25MG
  7. SPIRONOLACTONE [Suspect]
     Active Substance: SPIRONOLACTONE
     Dosage: UNK; SHE TRIPLED HER DOSES OF LISINOPRIL 25MG
  8. SPIRONOLACTONE [Suspect]
     Active Substance: SPIRONOLACTONE
     Dosage: UNK; SHE TRIPLED HER DOSES OF LISINOPRIL 25MG
     Route: 065
  9. POTASSIUM CHLORIDE [Suspect]
     Active Substance: POTASSIUM CHLORIDE
     Indication: Hyperaldosteronism
     Dosage: 20 MILLIGRAM
     Route: 065
  10. POTASSIUM CHLORIDE [Suspect]
     Active Substance: POTASSIUM CHLORIDE
     Dosage: 20 MILLIGRAM
  11. POTASSIUM CHLORIDE [Suspect]
     Active Substance: POTASSIUM CHLORIDE
     Dosage: 20 MILLIGRAM
  12. POTASSIUM CHLORIDE [Suspect]
     Active Substance: POTASSIUM CHLORIDE
     Dosage: 20 MILLIGRAM
     Route: 065
  13. POTASSIUM CHLORIDE [Suspect]
     Active Substance: POTASSIUM CHLORIDE
     Dosage: UNK;  SHE TRIPLED HER DOSES OF POTASSIUM-CHLORIDE 20MG
     Route: 065
  14. POTASSIUM CHLORIDE [Suspect]
     Active Substance: POTASSIUM CHLORIDE
     Dosage: UNK;  SHE TRIPLED HER DOSES OF POTASSIUM-CHLORIDE 20MG
  15. POTASSIUM CHLORIDE [Suspect]
     Active Substance: POTASSIUM CHLORIDE
     Dosage: UNK;  SHE TRIPLED HER DOSES OF POTASSIUM-CHLORIDE 20MG
  16. POTASSIUM CHLORIDE [Suspect]
     Active Substance: POTASSIUM CHLORIDE
     Dosage: UNK;  SHE TRIPLED HER DOSES OF POTASSIUM-CHLORIDE 20MG
     Route: 065
  17. LISINOPRIL [Suspect]
     Active Substance: LISINOPRIL
     Indication: Hyperaldosteronism
     Dosage: 25 MILLIGRAM
     Route: 065
  18. LISINOPRIL [Suspect]
     Active Substance: LISINOPRIL
     Dosage: 25 MILLIGRAM
  19. LISINOPRIL [Suspect]
     Active Substance: LISINOPRIL
     Dosage: 25 MILLIGRAM
  20. LISINOPRIL [Suspect]
     Active Substance: LISINOPRIL
     Dosage: 25 MILLIGRAM
     Route: 065
  21. LISINOPRIL [Suspect]
     Active Substance: LISINOPRIL
     Dosage: UNK;  SHE TRIPLED HER DOSES OF SPIRONOLACTONE 25MG
     Route: 065
  22. LISINOPRIL [Suspect]
     Active Substance: LISINOPRIL
     Dosage: UNK;  SHE TRIPLED HER DOSES OF SPIRONOLACTONE 25MG
  23. LISINOPRIL [Suspect]
     Active Substance: LISINOPRIL
     Dosage: UNK;  SHE TRIPLED HER DOSES OF SPIRONOLACTONE 25MG
  24. LISINOPRIL [Suspect]
     Active Substance: LISINOPRIL
     Dosage: UNK;  SHE TRIPLED HER DOSES OF SPIRONOLACTONE 25MG
     Route: 065

REACTIONS (4)
  - Hyperkalaemia [Recovered/Resolved]
  - Renal tubular acidosis [Recovered/Resolved]
  - Intentional product misuse [Recovered/Resolved]
  - Product use in unapproved indication [Unknown]
